FAERS Safety Report 8724691 (Version 2)
Quarter: 2013Q1

REPORT INFORMATION
  Report Type: Spontaneous
  Country: US (occurrence: US)
  Receive Date: 20120815
  Receipt Date: 20130201
  Transmission Date: 20140127
  Serious: Yes (Disabling)
  Sender: FDA-Public Use
  Company Number: US-PFIZER INC-2012195062

PATIENT
  Age: 49 Year
  Sex: Female
  Weight: 90 kg

DRUGS (7)
  1. EFFEXOR XR [Suspect]
     Indication: DEPRESSION
     Dosage: 150 MG,  DAILY
  2. EFFEXOR XR [Suspect]
     Dosage: 150 MG, 1X/DAY
     Route: 048
     Dates: end: 201205
  3. AZULFIDINE EN [Suspect]
     Dosage: 1000 MG, 2X/DAY (2 TABS AM, 2 TABS PM)
  4. REQUIP [Concomitant]
     Indication: RESTLESS LEGS SYNDROME
     Dosage: 3 MG PER DAY
  5. REQUIP [Concomitant]
     Dosage: UNK
  6. NAPROXEN SODIUM [Concomitant]
     Dosage: UNK
  7. AZULFIDINE [Concomitant]
     Dosage: UNK

REACTIONS (4)
  - Impaired work ability [Unknown]
  - Rheumatoid arthritis [Unknown]
  - Synovitis [Unknown]
  - Withdrawal syndrome [Not Recovered/Not Resolved]
